FAERS Safety Report 21948696 (Version 1)
Quarter: 2023Q1

REPORT INFORMATION
  Report Type: Spontaneous
  Country: DK (occurrence: DK)
  Receive Date: 20230203
  Receipt Date: 20230203
  Transmission Date: 20230418
  Serious: Yes (Death, Life-Threatening, Hospitalization, Disabling)
  Sender: FDA-Public Use
  Company Number: None

PATIENT
  Age: 83 Year
  Sex: Female
  Weight: 64 kg

DRUGS (6)
  1. XARELTO [Suspect]
     Active Substance: RIVAROXABAN
     Indication: Product used for unknown indication
     Dosage: 20 MG, QD
     Route: 048
     Dates: start: 20210220, end: 20230109
  2. TICAGRELOR [Suspect]
     Active Substance: TICAGRELOR
     Indication: Intracardiac thrombus
     Dosage: STRENGTH: 90 MG
     Route: 048
     Dates: start: 20180129
  3. FUROSEMIDE [Concomitant]
     Active Substance: FUROSEMIDE
     Indication: Diuretic therapy
     Dosage: STRENGTH: 40 MG
     Route: 048
     Dates: start: 20210905
  4. METOPROLOL SUCCINATE [Concomitant]
     Active Substance: METOPROLOL SUCCINATE
     Indication: Intracardiac thrombus
     Route: 048
     Dates: start: 20180129
  5. LOSARTAN [Concomitant]
     Active Substance: LOSARTAN
     Indication: Hypertension
     Route: 048
     Dates: start: 20181129
  6. ATORVASTATIN [Concomitant]
     Active Substance: ATORVASTATIN
     Indication: Cardiovascular event prophylaxis
     Route: 048
     Dates: start: 20180131

REACTIONS (2)
  - Cerebral haemorrhage [Fatal]
  - Confusional state [Fatal]

NARRATIVE: CASE EVENT DATE: 20230109
